FAERS Safety Report 5861056-2 (Version None)
Quarter: 2008Q3

REPORT INFORMATION
  Report Type: 
  Country: None (occurrence: None)
  Receive Date: 20080827
  Receipt Date: 20080306
  Transmission Date: 20090109
  Serious: Yes (Hospitalization)
  Sender: FDA-Public Use
  Company Number: US-ABBOTT-08P-163-0436134-00

PATIENT
  Sex: Male
  Weight: 100 kg

DRUGS (8)
  1. NIASPAN [Suspect]
     Indication: BLOOD CHOLESTEROL INCREASED
     Route: 048
     Dates: start: 20070801, end: 20080131
  2. NIASPAN [Suspect]
     Dosage: COATED
     Route: 048
     Dates: start: 20080131, end: 20080217
  3. NIASPAN [Suspect]
     Dosage: UNCOATED
     Route: 048
     Dates: start: 20040101, end: 20070801
  4. NIASPAN [Suspect]
     Route: 048
     Dates: start: 20080218
  5. DIGOXIN [Concomitant]
     Indication: DRUG USE FOR UNKNOWN INDICATION
     Route: 048
  6. OMEPRAZOLE [Concomitant]
     Indication: GASTROOESOPHAGEAL REFLUX DISEASE
     Route: 048
  7. METOPROLOL TARTRATE [Concomitant]
     Indication: HYPERTENSION
     Route: 048
  8. PROPAFENONE HCL [Concomitant]
     Indication: DRUG USE FOR UNKNOWN INDICATION
     Route: 048

REACTIONS (3)
  - ATRIAL FIBRILLATION [None]
  - DIZZINESS [None]
  - FLUSHING [None]
